FAERS Safety Report 5514595-8 (Version None)
Quarter: 2007Q4

REPORT INFORMATION
  Report Type: 
  Country: None (occurrence: None)
  Receive Date: 20071113
  Receipt Date: 20071108
  Transmission Date: 20080405
  Serious: Yes (Other)
  Sender: FDA-Public Use
  Company Number: D0055068A

PATIENT
  Sex: Male

DRUGS (1)
  1. VIANI [Suspect]
     Route: 055

REACTIONS (1)
  - VISUAL DISTURBANCE [None]
